FAERS Safety Report 8339511-5 (Version None)
Quarter: 2012Q2

REPORT INFORMATION
  Report Type: 
  Country: None (occurrence: None)
  Receive Date: 20120507
  Receipt Date: 20120501
  Transmission Date: 20120825
  Serious: No
  Sender: FDA-Public Use
  Company Number: US-BAYER-2012-041833

PATIENT
  Age: 57 Year
  Sex: Male

DRUGS (2)
  1. NEXAVAR [Suspect]
     Indication: HEPATIC NEOPLASM MALIGNANT
     Dosage: 400 MG, BID
     Dates: start: 20120410
  2. ASPIRIN [Concomitant]
     Indication: PAIN
     Route: 048

REACTIONS (10)
  - BACK PAIN [None]
  - DYSPNOEA [None]
  - FEELING HOT [None]
  - ABDOMINAL PAIN [None]
  - SLEEP APNOEA SYNDROME [None]
  - PAIN [None]
  - RASH [None]
  - DIZZINESS [None]
  - BLOOD CHOLESTEROL INCREASED [None]
  - DRY SKIN [None]
